FAERS Safety Report 24417665 (Version 2)
Quarter: 2024Q4

REPORT INFORMATION
  Report Type: Spontaneous
  Country: JP (occurrence: JP)
  Receive Date: 20241009
  Receipt Date: 20241025
  Transmission Date: 20250115
  Serious: No
  Sender: Visiox
  Company Number: JP-SANTEN-2024-AER-00418

PATIENT
  Age: 76 Year
  Sex: Female

DRUGS (3)
  1. OMIDENEPAG ISOPROPYL [Suspect]
     Active Substance: OMIDENEPAG ISOPROPYL
     Indication: Glaucoma
     Dosage: UNK
     Route: 047
     Dates: start: 20240308, end: 202409
  2. RINDERON [Concomitant]
     Indication: Product used for unknown indication
     Dosage: UNK, 4X/DAY
     Route: 047
     Dates: start: 20240909, end: 20240909
  3. RINDERON [Concomitant]
     Dosage: UNK, 6X/DAY
     Route: 047
     Dates: start: 20240909

REACTIONS (2)
  - Anterior chamber inflammation [Recovered/Resolved]
  - Cystoid macular oedema [Recovered/Resolved]

NARRATIVE: CASE EVENT DATE: 20240909
